FAERS Safety Report 25981734 (Version 1)
Quarter: 2025Q4

REPORT INFORMATION
  Report Type: Spontaneous
  Country: CA (occurrence: CA)
  Receive Date: 20251031
  Receipt Date: 20251031
  Transmission Date: 20260118
  Serious: Yes (Hospitalization, Other)
  Sender: CELLTRION
  Company Number: CA-CELLTRION INC.-2025CA039293

PATIENT

DRUGS (1)
  1. INFLIXIMAB [Suspect]
     Active Substance: INFLIXIMAB
     Indication: Colitis ulcerative
     Dosage: 5MG/KG IV AT WEEK 2 AND 6. THEN MAINTENANCE EVERY 8 WEEKS
     Route: 042
     Dates: start: 20251017

REACTIONS (1)
  - Haematochezia [Unknown]
